FAERS Safety Report 5744201-9 (Version None)
Quarter: 2008Q2

REPORT INFORMATION
  Report Type: 
  Country: None (occurrence: None)
  Receive Date: 20080516
  Receipt Date: 20080516
  Transmission Date: 20081010
  Serious: Yes (Death, Hospitalization)
  Sender: FDA-Public Use
  Company Number: None

PATIENT
  Age: 53 Year
  Sex: Female

DRUGS (11)
  1. TAMOXIFEN CITRATE [Suspect]
     Indication: PROPHYLACTIC CHEMOTHERAPY
     Dosage: 20 MG 1 TIMES PR. 1. DAY ORAL
     Route: 048
  2. WARFARIN SODIUM [Suspect]
     Indication: CONGESTIVE CARDIOMYOPATHY
     Dosage: 5 MG 1 TIMES PR. 1. DAY
  3. OMEPRAZOLE [Suspect]
     Dosage: 20 MG 1 TIMES PR. 1. DAY ORAL
     Route: 048
  4. FUROSEMIDE [Concomitant]
  5. METOCLOPRAMIDE [Concomitant]
  6. SPIRONOLACTONE [Concomitant]
  7. DIGOXIN (BETA-ACETYLDIGOXIN) [Concomitant]
  8. CARVEDILOL [Concomitant]
  9. LOSARTAN POTASSIUM [Concomitant]
  10. ALFACALCIDOL (ALFACALCIDOL) [Concomitant]
  11. VITAMIN B NOS (VITAMIN B NOS) [Concomitant]

REACTIONS (7)
  - CARDIAC DISORDER [None]
  - CONDITION AGGRAVATED [None]
  - DILATATION VENTRICULAR [None]
  - DRUG INTERACTION [None]
  - INTERNATIONAL NORMALISED RATIO INCREASED [None]
  - RECTAL HAEMORRHAGE [None]
  - VENTRICULAR HYPOKINESIA [None]
